FAERS Safety Report 7084569-7 (Version None)
Quarter: 2010Q4

REPORT INFORMATION
  Report Type: 
  Country: None (occurrence: None)
  Receive Date: 20101104
  Receipt Date: 20101022
  Transmission Date: 20110411
  Serious: Yes (Other)
  Sender: FDA-Public Use
  Company Number: US-AMGEN-USASP2010001196

PATIENT

DRUGS (1)
  1. NPLATE [Suspect]
     Indication: THROMBOCYTOPENIA

REACTIONS (2)
  - ADVERSE DRUG REACTION [None]
  - MULTIMORBIDITY [None]
